FAERS Safety Report 7008976-3 (Version None)
Quarter: 2010Q3

REPORT INFORMATION
  Report Type: 
  Country: None (occurrence: None)
  Receive Date: 20100923
  Receipt Date: 20100920
  Transmission Date: 20110219
  Serious: Yes (Other)
  Sender: FDA-Public Use
  Company Number: US-TEVA-245692USA

PATIENT
  Sex: Female

DRUGS (13)
  1. COPAXONE [Suspect]
     Indication: MULTIPLE SCLEROSIS
     Route: 058
  2. OXYBUTIN [Concomitant]
     Dosage: 5 MG BID
  3. OXYBUTIN [Concomitant]
     Dosage: 5 MG BID
  4. CITALOPRAM HYDROBROMIDE [Concomitant]
     Dosage: 40 MG DAILY
  5. CITALOPRAM HYDROBROMIDE [Concomitant]
     Dosage: 5 MG BID
  6. CITALOPRAM HYDROBROMIDE [Concomitant]
     Dosage: 40 MG DAILY
  7. CALCIUM/VITAMIN D [Concomitant]
  8. ASCORBIC ACID [Concomitant]
  9. VITAMIN B-12 [Concomitant]
  10. MULTI-VITAMIN [Concomitant]
  11. HYDROCODONE BITARTRATE AND ACETAMINOPHEN [Concomitant]
  12. IBUPROFEN [Concomitant]
  13. LOPERAMIDE [Concomitant]

REACTIONS (1)
  - BREAST CANCER [None]
